FAERS Safety Report 5360488-9 (Version None)
Quarter: 2007Q2

REPORT INFORMATION
  Report Type: 
  Country: None (occurrence: None)
  Receive Date: 20070618
  Receipt Date: 20070611
  Transmission Date: 20071010
  Serious: Yes (Hospitalization)
  Sender: FDA-Public Use
  Company Number: B0459839A

PATIENT
  Age: 29 Year
  Sex: Male

DRUGS (1)
  1. AUGMENTIN '125' [Suspect]
     Indication: LARYNGOPHARYNGITIS
     Dosage: 2G PER DAY
     Route: 048
     Dates: start: 20070208, end: 20070213

REACTIONS (2)
  - DERMATITIS ALLERGIC [None]
  - RASH MACULO-PAPULAR [None]
